FAERS Safety Report 9428003 (Version 1)
Quarter: 2013Q3

REPORT INFORMATION
  Report Type: Spontaneous
  Country: US (occurrence: US)
  Receive Date: 20130730
  Receipt Date: 20130730
  Transmission Date: 20140515
  Serious: No
  Sender: FDA-Public Use
  Company Number: US-ABBOTT-12P-163-0971116-00

PATIENT
  Age: 75 Year
  Sex: Female
  Weight: 56.75 kg

DRUGS (9)
  1. NIASPAN (COATED) 500MG [Suspect]
     Indication: BLOOD CHOLESTEROL INCREASED
     Dates: start: 201207
  2. VYTORIN [Concomitant]
     Indication: BLOOD CHOLESTEROL INCREASED
  3. ASPIRIN [Concomitant]
     Indication: CARDIAC DISORDER
  4. ALLEGRA [Concomitant]
     Indication: HYPERSENSITIVITY
  5. SINGULAIR [Concomitant]
     Indication: ASTHMA
  6. HYZAAR [Concomitant]
     Indication: HYPERTENSION
  7. PREMADONE [Concomitant]
     Indication: TREMOR
  8. IBUPROFEN [Concomitant]
     Indication: PAIN
  9. FLOMAX [Concomitant]
     Indication: URINARY RETENTION

REACTIONS (3)
  - Fatigue [Not Recovered/Not Resolved]
  - Nausea [Not Recovered/Not Resolved]
  - Pruritus [Not Recovered/Not Resolved]
